FAERS Safety Report 16344610 (Version 1)
Quarter: 2019Q2

REPORT INFORMATION
  Report Type: Spontaneous
  Country: ES (occurrence: ES)
  Receive Date: 20190522
  Receipt Date: 20190522
  Transmission Date: 20190711
  Serious: Yes (Life-Threatening, Hospitalization)
  Sender: FDA-Public Use
  Company Number: PHHY2019ES116588

PATIENT
  Age: 61 Year
  Sex: Male

DRUGS (6)
  1. RITUXIMAB. [Interacting]
     Active Substance: RITUXIMAB
     Indication: B-CELL LYMPHOMA
     Dosage: 693.75 MG, UNK (CYCLICAL)
     Route: 042
     Dates: start: 20150708, end: 20151021
  2. DOXORRUBICINA [Interacting]
     Active Substance: DOXORUBICIN HYDROCHLORIDE
     Indication: B-CELL LYMPHOMA
     Dosage: 18.5 MG, UNK (CYCLICAL)
     Route: 041
     Dates: start: 20150709, end: 20151024
  3. VINCRISTINA [Interacting]
     Active Substance: VINCRISTINE
     Indication: B-CELL LYMPHOMA
     Dosage: 0.74 MG, UNK (6 CICLOS, EN PC, DIAS 2-4 DEL CICLO)
     Route: 041
     Dates: start: 20150709
  4. ETOPOSIDE. [Interacting]
     Active Substance: ETOPOSIDE
     Indication: B-CELL LYMPHOMA
     Dosage: 92.5 MG, UNK (CYCLICAL)
     Route: 041
     Dates: start: 20150709, end: 20151024
  5. CICLOFOSFAMIDA [Interacting]
     Active Substance: CYCLOPHOSPHAMIDE
     Indication: B-CELL LYMPHOMA
     Dosage: 1387.5 MG, UNK (CYCLIC)(DIA 5 DE CICLO)
     Route: 042
     Dates: start: 20150712, end: 20151025
  6. METHOTREXATE. [Suspect]
     Active Substance: METHOTREXATE
     Indication: B-CELL LYMPHOMA
     Dosage: 9098.6 MG, UNK (TOTAL)
     Route: 042
     Dates: start: 20151128, end: 20151214

REACTIONS (1)
  - Acute myeloid leukaemia [Recovered/Resolved with Sequelae]

NARRATIVE: CASE EVENT DATE: 20160508
